FAERS Safety Report 16130038 (Version 1)
Quarter: 2019Q1

REPORT INFORMATION
  Report Type: Spontaneous
  Country: PT (occurrence: PT)
  Receive Date: 20190328
  Receipt Date: 20190328
  Transmission Date: 20190418
  Serious: Yes (Life-Threatening, Hospitalization)
  Sender: FDA-Public Use
  Company Number: PT-MYLANLABS-2019M1009646

PATIENT
  Age: 74 Year
  Sex: Female

DRUGS (1)
  1. BISOPROLOL [Suspect]
     Active Substance: BISOPROLOL
     Indication: ARRHYTHMIA
     Dosage: 10 MG,QD
     Route: 048
     Dates: start: 20180521, end: 20180723

REACTIONS (2)
  - Atrioventricular block [Recovered/Resolved]
  - Ventricular failure [Recovering/Resolving]

NARRATIVE: CASE EVENT DATE: 20180723
